FAERS Safety Report 24274206 (Version 1)
Quarter: 2024Q3

REPORT INFORMATION
  Report Type: Report from Study
  Country: DO (occurrence: DO)
  Receive Date: 20240902
  Receipt Date: 20240902
  Transmission Date: 20241017
  Serious: Yes (Other)
  Sender: NOVARTIS
  Company Number: DO-002147023-NVSC2024DO052540

PATIENT
  Sex: Female

DRUGS (1)
  1. KISQALI [Suspect]
     Active Substance: RIBOCICLIB
     Indication: Breast cancer
     Dosage: 600 MG, QD
     Route: 048
     Dates: start: 20210707

REACTIONS (7)
  - Dysphagia [Unknown]
  - Throat tightness [Unknown]
  - Skin discolouration [Unknown]
  - Urticaria [Unknown]
  - Dry skin [Unknown]
  - Somnolence [Unknown]
  - Wound [Unknown]
